FAERS Safety Report 4586574-9 (Version None)
Quarter: 2005Q1

REPORT INFORMATION
  Report Type: 
  Country: None (occurrence: None)
  Receive Date: 20050218
  Receipt Date: 20040421
  Transmission Date: 20050727
  Serious: No
  Sender: FDA-Public Use
  Company Number: US-BRISTOL-MYERS SQUIBB COMPANY-12568119

PATIENT
  Age: 50 Year
  Sex: Female

DRUGS (5)
  1. TAXOL [Suspect]
     Indication: OVARIAN CANCER
     Route: 042
     Dates: start: 20040421, end: 20040421
  2. DECADRON [Concomitant]
     Indication: PREMEDICATION
     Route: 048
     Dates: start: 20040421, end: 20040421
  3. ZOFRAN [Concomitant]
     Indication: PREMEDICATION
     Route: 048
     Dates: start: 20040421, end: 20040421
  4. PEPCID [Concomitant]
     Indication: PREMEDICATION
     Route: 048
     Dates: start: 20040421, end: 20040421
  5. BENADRYL [Concomitant]
     Indication: PREMEDICATION
     Route: 048
     Dates: start: 20040421, end: 20040421

REACTIONS (1)
  - VEIN DISCOLOURATION [None]
